FAERS Safety Report 5484583-9 (Version None)
Quarter: 2007Q4

REPORT INFORMATION
  Report Type: 
  Country: None (occurrence: None)
  Receive Date: 20071012
  Receipt Date: 20071003
  Transmission Date: 20080405
  Serious: Yes (Hospitalization, Other)
  Sender: FDA-Public Use
  Company Number: US-PFIZER INC-2007082919

PATIENT
  Age: 72 Year
  Sex: Male

DRUGS (1)
  1. CELEBREX [Suspect]
     Indication: SURGERY

REACTIONS (2)
  - HEPATOTOXICITY [None]
  - WEIGHT DECREASED [None]
